FAERS Safety Report 21856951 (Version 2)
Quarter: 2023Q1

REPORT INFORMATION
  Report Type: Report from Study
  Country: CY (occurrence: CY)
  Receive Date: 20230113
  Receipt Date: 20230327
  Transmission Date: 20230418
  Serious: Yes (Other)
  Sender: FDA-Public Use
  Company Number: CY-CELLTRION INC.-2023CY000159

PATIENT

DRUGS (28)
  1. TRASTUZUMAB [Suspect]
     Active Substance: TRASTUZUMAB
     Indication: HER2 positive breast cancer
     Dosage: 456 MILLIGRAM, EVERY 3 WEEKS
     Route: 042
     Dates: start: 20160718
  2. PERTUZUMAB [Suspect]
     Active Substance: PERTUZUMAB
     Indication: HER2 positive breast cancer
     Dosage: 840 MILLIGRAM, EVERY 3 WEEKS
     Route: 042
     Dates: start: 20160926
  3. PERTUZUMAB [Suspect]
     Active Substance: PERTUZUMAB
     Dosage: 840 MILLIGRAM, EVERY 3 WEEKS
     Route: 042
  4. DOCETAXEL [Suspect]
     Active Substance: DOCETAXEL
     Indication: HER2 positive breast cancer
     Dosage: PLANNED NUMBER OF CYCLES COMPLETED
     Route: 042
     Dates: start: 20160711, end: 20161122
  5. OMEPRAZOLE [Concomitant]
     Active Substance: OMEPRAZOLE
     Indication: Prophylaxis
     Dosage: EVERY 1 DAY
     Dates: start: 20160711, end: 20170424
  6. OMEPRAZOLE [Concomitant]
     Active Substance: OMEPRAZOLE
     Dosage: UNK
  7. METOCLOPRAMIDE [Concomitant]
     Active Substance: METOCLOPRAMIDE
     Indication: Vomiting
     Dosage: UNK
     Dates: start: 20180307
  8. METOCLOPRAMIDE [Concomitant]
     Active Substance: METOCLOPRAMIDE
     Dosage: UNK
     Dates: start: 20170117
  9. KEPPRA [Concomitant]
     Active Substance: LEVETIRACETAM
     Indication: Prophylaxis
     Dosage: EVERY 0.5 DAY
     Dates: start: 20171129
  10. CONTROLOC [Concomitant]
     Active Substance: PANTOPRAZOLE SODIUM
     Indication: Prophylaxis
     Dosage: EVERY 1 DAY
     Dates: start: 20171129
  11. DEXAMETHASONE [Concomitant]
     Active Substance: DEXAMETHASONE
     Indication: Metastases to central nervous system
     Dosage: EVERY 1 DAY
     Dates: start: 20200729, end: 20200802
  12. DEXAMETHASONE [Concomitant]
     Active Substance: DEXAMETHASONE
     Dosage: EVERY 1 DAY
     Dates: start: 20200725, end: 20200728
  13. DEXAMETHASONE [Concomitant]
     Active Substance: DEXAMETHASONE
     Dosage: EVERY 1 DAY
     Dates: start: 20200713, end: 20200724
  14. NYSTATIN [Concomitant]
     Active Substance: NYSTATIN
     Indication: Prophylaxis
     Dosage: UNK
  15. NYSTATIN [Concomitant]
     Active Substance: NYSTATIN
     Dosage: EVERY 3 DAYS, UNK
     Dates: start: 20160711, end: 20170606
  16. CALCIUM [Concomitant]
     Active Substance: CALCIUM
     Indication: Prophylaxis
     Dosage: EVERY 1 DAY, ONGOING = CHECKED
     Dates: start: 20171213
  17. METOCLOPRAMIDE HYDROCHLORIDE [Concomitant]
     Active Substance: METOCLOPRAMIDE HYDROCHLORIDE
     Indication: Vomiting
     Dosage: 10 MG
     Dates: start: 20180307
  18. ZOLEDRONIC ACID [Concomitant]
     Active Substance: ZOLEDRONIC ACID
     Indication: Prophylaxis
     Dosage: UNK
  19. ZOLEDRONIC ACID [Concomitant]
     Active Substance: ZOLEDRONIC ACID
     Dosage: EVERY 1 MONTH
     Dates: start: 20170131
  20. CLOPERAN [Concomitant]
     Dosage: 10 MG
     Dates: start: 20160711, end: 20171213
  21. XYLOMETAZOLINE HYDROCHLORIDE [Concomitant]
     Active Substance: XYLOMETAZOLINE HYDROCHLORIDE
     Indication: Influenza
     Dosage: UNK
     Dates: start: 20170220, end: 20170227
  22. ACETAMINOPHEN [Concomitant]
     Active Substance: ACETAMINOPHEN
     Indication: Headache
     Dosage: 1000 MG
     Dates: start: 20170710, end: 20171213
  23. ACETAMINOPHEN [Concomitant]
     Active Substance: ACETAMINOPHEN
     Dosage: UNK
  24. ACETAMINOPHEN [Concomitant]
     Active Substance: ACETAMINOPHEN
     Dosage: 1000 MG
     Dates: start: 20160829
  25. ACETAMINOPHEN [Concomitant]
     Active Substance: ACETAMINOPHEN
     Dosage: 1000 MG
     Dates: start: 20180126, end: 20191220
  26. LORAZEPAM [Concomitant]
     Active Substance: LORAZEPAM
     Indication: Product used for unknown indication
     Dosage: EVERY 1 DAY
     Dates: start: 20160711
  27. LORAZEPAM [Concomitant]
     Active Substance: LORAZEPAM
     Dosage: UNK
  28. VITAMIN C [Concomitant]
     Active Substance: ASCORBIC ACID
     Indication: Prophylaxis
     Dosage: 500 MG, QD
     Dates: start: 20180718, end: 20190215

REACTIONS (17)
  - Neuropathy peripheral [Recovered/Resolved]
  - Neuropathy peripheral [Recovered/Resolved]
  - Dermatitis acneiform [Recovered/Resolved]
  - Hypersomnia [Recovered/Resolved]
  - Abdominal distension [Recovered/Resolved]
  - Blepharospasm [Unknown]
  - Hot flush [Unknown]
  - Fatigue [Recovered/Resolved]
  - Headache [Recovered/Resolved]
  - Decreased appetite [Recovered/Resolved]
  - Vomiting [Recovered/Resolved]
  - Dyspepsia [Recovered/Resolved]
  - Nausea [Recovered/Resolved]
  - Arthralgia [Recovered/Resolved]
  - Dizziness [Recovered/Resolved]
  - Diarrhoea [Recovered/Resolved]
  - Influenza [Recovered/Resolved]

NARRATIVE: CASE EVENT DATE: 20170130
